FAERS Safety Report 23132778 (Version 1)
Quarter: 2023Q4

REPORT INFORMATION
  Report Type: Spontaneous
  Country: US (occurrence: US)
  Receive Date: 20231101
  Receipt Date: 20231101
  Transmission Date: 20240109
  Serious: Yes (Other)
  Sender: FDA-Public Use
  Company Number: US-AVET LIFESCIENCES LTD-2023-AVET-000313

PATIENT
  Age: 56 Year
  Sex: Female

DRUGS (2)
  1. PENTOXIFYLLINE [Suspect]
     Active Substance: PENTOXIFYLLINE
     Indication: Necrobiosis lipoidica diabeticorum
     Dosage: 400 MILLIGRAM, 3 TIMES DAILY
     Route: 048
     Dates: start: 202106
  2. INFLIXIMAB [Suspect]
     Active Substance: INFLIXIMAB
     Indication: Necrobiosis lipoidica diabeticorum
     Dosage: 10 MILLIGRAM PER KILOGRAM, 1 DOSE PER 8W
     Dates: start: 202106

REACTIONS (1)
  - Drug ineffective for unapproved indication [Unknown]
